FAERS Safety Report 10747727 (Version 1)
Quarter: 2015Q1

REPORT INFORMATION
  Report Type: Spontaneous
  Country: GB (occurrence: None)
  Receive Date: 20150127
  Receipt Date: 20150127
  Transmission Date: 20150721
  Serious: Yes (Death, Life-Threatening, Hospitalization, Other)
  Sender: FDA-Public Use
  Company Number: B0948866A

PATIENT
  Age: 49 Year
  Sex: Female

DRUGS (9)
  1. ADCAL-D3 (CALCIUM CARBONATE + COLECALCIFEROL) [Concomitant]
  2. INTELENCE [Suspect]
     Active Substance: ETRAVIRINE
     Indication: HIV INFECTION
     Route: 048
     Dates: start: 20130308, end: 20130515
  3. FERROUS SULPHATE (FERROUS SULPHATE) [Concomitant]
  4. FOLIC ACID (FOLIC ACID) [Concomitant]
     Active Substance: FOLIC ACID
  5. ACICLOVIR [Suspect]
     Active Substance: ACYCLOVIR
     Indication: PROPHYLAXIS
     Route: 048
     Dates: start: 201008, end: 20130515
  6. LAMIVUDINE (LAMIVUDINE) UNKNOWN [Suspect]
     Active Substance: LAMIVUDINE
     Indication: HIV INFECTION
     Route: 048
     Dates: start: 20130308, end: 20130515
  7. PREZISTA [Suspect]
     Active Substance: DARUNAVIR ETHANOLATE
     Indication: HIV INFECTION
     Route: 048
     Dates: start: 20110505, end: 20121002
  8. ISENTRESS [Suspect]
     Active Substance: RALTEGRAVIR POTASSIUM
     Indication: HIV INFECTION
     Route: 048
     Dates: start: 20130308, end: 20130515
  9. ETRAVIRINE (ETRAVIRINE) [Concomitant]
     Active Substance: ETRAVIRINE

REACTIONS (9)
  - Sepsis [None]
  - Abdominal pain [None]
  - Acidosis [None]
  - Pancreatitis acute [None]
  - Hypotension [None]
  - Pneumonia [None]
  - Wrong technique in drug usage process [None]
  - Acute kidney injury [None]
  - Multi-organ failure [None]

NARRATIVE: CASE EVENT DATE: 20130515
